FAERS Safety Report 7569181-5 (Version None)
Quarter: 2011Q2

REPORT INFORMATION
  Report Type: 
  Country: None (occurrence: None)
  Receive Date: 20110623
  Receipt Date: 20110610
  Transmission Date: 20111010
  Serious: Yes (Hospitalization)
  Sender: FDA-Public Use
  Company Number: PHHY2011IT51805

PATIENT
  Sex: Male

DRUGS (1)
  1. TEGRETOL [Suspect]
     Indication: TRIGEMINAL NEURALGIA
     Dosage: 300
     Route: 048
     Dates: start: 20110401

REACTIONS (3)
  - RENAL INFARCT [None]
  - SPLENIC INFARCTION [None]
  - ABDOMINAL PAIN [None]
